FAERS Safety Report 26075512 (Version 1)
Quarter: 2025Q4

REPORT INFORMATION
  Report Type: Other
  Country: US (occurrence: US)
  Receive Date: 20251121
  Receipt Date: 20251121
  Transmission Date: 20260117
  Serious: No
  Sender: VERASTEM
  Company Number: US-VERASTEM-251112US-AFCPK-00818

PATIENT

DRUGS (1)
  1. AVMAPKI FAKZYNJA CO-PACK [Suspect]
     Active Substance: AVUTOMETINIB POTASSIUM\DEFACTINIB HYDROCHLORIDE
     Indication: Pancreatic carcinoma
     Dosage: AVMAPKI 3.2 MG ON DAYS 1 + 4 FOR FIRST 3 WEEKS OF EACH 4 WEEK CYCLE, FAKZYNJA 200 MG TWICE DAILY FOR
     Route: 048
     Dates: start: 20251105

REACTIONS (3)
  - Red blood cell count decreased [Unknown]
  - Skin irritation [Unknown]
  - Off label use [Unknown]
